FAERS Safety Report 6537390-X (Version None)
Quarter: 2010Q1

REPORT INFORMATION
  Report Type: 
  Country: None (occurrence: None)
  Receive Date: 20100114
  Receipt Date: 20100107
  Transmission Date: 20100710
  Serious: Yes (Other)
  Sender: FDA-Public Use
  Company Number: US-NOVOPROD-300348

PATIENT
  Age: 54 Year
  Sex: Female
  Weight: 74.376 kg

DRUGS (2)
  1. NOVOLOG [Suspect]
     Indication: DIABETES MELLITUS
     Dosage: UNK
     Route: 058
  2. LEVEMIR [Suspect]
     Indication: DIABETES MELLITUS
     Dosage: UNK
     Route: 058

REACTIONS (5)
  - DEHYDRATION [None]
  - DIZZINESS [None]
  - PAIN IN EXTREMITY [None]
  - PRESYNCOPE [None]
  - PRODUCT QUALITY ISSUE [None]
